FAERS Safety Report 4285060-3 (Version None)
Quarter: 2004Q1

REPORT INFORMATION
  Report Type: 
  Country: None (occurrence: None)
  Receive Date: 20040203
  Receipt Date: 20040203
  Transmission Date: 20041129
  Serious: Yes (Life-Threatening)
  Sender: FDA-Public Use
  Company Number: None

PATIENT
  Age: 51 Year
  Sex: Male
  Weight: 60 kg

DRUGS (3)
  1. OXALIPLATIN [Suspect]
     Indication: COLON CANCER
     Dosage: 153 MG IV
     Route: 042
     Dates: start: 20020621
  2. CAPECITABINE [Concomitant]
  3. CIMETIDINE [Concomitant]

REACTIONS (1)
  - HYPERSENSITIVITY [None]
